FAERS Safety Report 16840500 (Version 1)
Quarter: 2019Q3

REPORT INFORMATION
  Report Type: Spontaneous
  Country: IN (occurrence: IN)
  Receive Date: 20190923
  Receipt Date: 20190923
  Transmission Date: 20191005
  Serious: Yes (Other)
  Sender: FDA-Public Use
  Company Number: PHHY2019IN205778

PATIENT
  Age: 59 Year
  Sex: Male

DRUGS (2)
  1. NEVANAC [Suspect]
     Active Substance: NEPAFENAC
     Indication: EYE INFLAMMATION
     Dosage: UNK UNK, TID
     Route: 061
     Dates: start: 201907, end: 20190914
  2. NEVANAC [Suspect]
     Active Substance: NEPAFENAC
     Indication: POSTOPERATIVE CARE

REACTIONS (4)
  - Eye discharge [Unknown]
  - Eyelid disorder [Unknown]
  - Conjunctival hyperaemia [Unknown]
  - Swelling of eyelid [Recovered/Resolved]

NARRATIVE: CASE EVENT DATE: 20190911
